FAERS Safety Report 21684203 (Version 1)
Quarter: 2022Q4

REPORT INFORMATION
  Report Type: Spontaneous
  Country: US (occurrence: None)
  Receive Date: 20221205
  Receipt Date: 20221205
  Transmission Date: 20230113
  Serious: Yes (Death)
  Sender: FDA-Public Use
  Company Number: None

PATIENT
  Age: 58 Year
  Sex: Female
  Weight: 103.6 kg

DRUGS (2)
  1. MIRCERA [Suspect]
     Active Substance: METHOXY POLYETHYLENE GLYCOL-EPOETIN BETA
     Indication: Anaemia
     Dosage: FREQUENCY : ONCE;?
     Route: 042
     Dates: start: 20221112, end: 20221126
  2. Calcitroil [Concomitant]

REACTIONS (5)
  - Haemodialysis [None]
  - Unresponsive to stimuli [None]
  - Blood pressure decreased [None]
  - Heart rate decreased [None]
  - Pulse absent [None]

NARRATIVE: CASE EVENT DATE: 20221126
